FAERS Safety Report 5029655-8 (Version None)
Quarter: 2006Q2

REPORT INFORMATION
  Report Type: 
  Country: None (occurrence: None)
  Receive Date: 20060614
  Receipt Date: 20060530
  Transmission Date: 20061013
  Serious: Yes (Hospitalization)
  Sender: FDA-Public Use
  Company Number: US200605006406

PATIENT
  Age: 38 Year
  Sex: Male

DRUGS (4)
  1. ZYPREXA [Suspect]
     Indication: BIPOLAR DISORDER
     Dosage: 15 MG, ORAL
     Route: 048
     Dates: start: 20010719
  2. FLUOXETINE HYDROCHLORIDE [Concomitant]
  3. DEPAKOTE - SLOW RELEASE (VALPROATE SEMISODIUM) [Concomitant]
  4. ZANTAC [Concomitant]

REACTIONS (6)
  - ABDOMINAL PAIN [None]
  - GALLBLADDER DISORDER [None]
  - HAEMATEMESIS [None]
  - NAUSEA [None]
  - VOMITING [None]
  - WHITE BLOOD CELL COUNT INCREASED [None]
